FAERS Safety Report 17346689 (Version 28)
Quarter: 2022Q4

REPORT INFORMATION
  Report Type: Report from Study
  Country: US (occurrence: US)
  Receive Date: 20200130
  Receipt Date: 20221011
  Transmission Date: 20230113
  Serious: Yes (Other)
  Sender: FDA-Public Use
  Company Number: NVSC2020US022180

PATIENT
  Sex: Female

DRUGS (5)
  1. COSENTYX [Suspect]
     Active Substance: SECUKINUMAB
     Indication: Psoriatic arthropathy
     Dosage: 150 MG
     Route: 058
     Dates: start: 2019
  2. COSENTYX [Suspect]
     Active Substance: SECUKINUMAB
     Indication: Psoriasis
     Dosage: 150 MG, QMO
     Route: 058
  3. COSENTYX [Suspect]
     Active Substance: SECUKINUMAB
     Indication: Rheumatoid arthritis
  4. XIIDRA [Suspect]
     Active Substance: LIFITEGRAST
     Indication: Psoriasis
     Dosage: UNK
     Route: 065
  5. LYRICA [Concomitant]
     Active Substance: PREGABALIN
     Indication: Product used for unknown indication
     Dosage: UNK
     Route: 065

REACTIONS (58)
  - Upper limb fracture [Unknown]
  - Psoriatic arthropathy [Unknown]
  - Joint stiffness [Unknown]
  - Joint swelling [Unknown]
  - Joint effusion [Unknown]
  - Neoplasm malignant [Unknown]
  - Pain [Unknown]
  - Systemic lupus erythematosus [Unknown]
  - Rheumatoid arthritis [Unknown]
  - Breast cancer stage III [Unknown]
  - Breast cancer [Unknown]
  - Lymphoma [Unknown]
  - Eye irritation [Unknown]
  - Multiple sclerosis [Unknown]
  - Eye disorder [Unknown]
  - Dry eye [Unknown]
  - Eye pruritus [Unknown]
  - Urinary incontinence [Unknown]
  - Alopecia [Unknown]
  - Gait disturbance [Unknown]
  - Fall [Unknown]
  - Balance disorder [Unknown]
  - Sjogren^s syndrome [Unknown]
  - Autoimmune disorder [Unknown]
  - Neuropathy peripheral [Unknown]
  - Illness [Unknown]
  - Skin haemorrhage [Unknown]
  - Blister [Unknown]
  - Psoriasis [Unknown]
  - Skin irritation [Unknown]
  - Rash [Unknown]
  - Skin burning sensation [Unknown]
  - Pigmentation disorder [Unknown]
  - Skin exfoliation [Unknown]
  - Scratch [Unknown]
  - Pruritus [Unknown]
  - Pleurisy [Unknown]
  - Skin discolouration [Unknown]
  - Dizziness [Unknown]
  - Nasopharyngitis [Unknown]
  - Cough [Unknown]
  - Anxiety [Unknown]
  - Chest discomfort [Unknown]
  - Lacrimation increased [Unknown]
  - Skin ulcer [Unknown]
  - Arthritis [Unknown]
  - Antibody test abnormal [Unknown]
  - Lung disorder [Unknown]
  - Thyroid disorder [Unknown]
  - Mass [Unknown]
  - Device difficult to use [Unknown]
  - Device malfunction [Unknown]
  - Device issue [Unknown]
  - Incorrect dose administered [Unknown]
  - Product dose omission issue [Unknown]
  - Inappropriate schedule of product administration [Unknown]
  - Product use in unapproved indication [Unknown]
  - Drug ineffective [Unknown]

NARRATIVE: CASE EVENT DATE: 20190101
